FAERS Safety Report 5021916-1 (Version None)
Quarter: 2006Q2

REPORT INFORMATION
  Report Type: 
  Country: None (occurrence: None)
  Receive Date: 20060609
  Receipt Date: 20060601
  Transmission Date: 20061013
  Serious: Yes (Death)
  Sender: FDA-Public Use
  Company Number: US-JNJFOC-20060600512

PATIENT
  Sex: Female

DRUGS (9)
  1. REMICADE [Suspect]
     Indication: RHEUMATOID ARTHRITIS
     Route: 042
  2. NORVASC [Concomitant]
  3. TOPROL-XL [Concomitant]
  4. LASIX [Concomitant]
  5. POTASSIUM [Concomitant]
  6. HYDROXYCHLOROQUINE SULFATE [Concomitant]
  7. PREDNISONE [Concomitant]
  8. ARAVA [Concomitant]
  9. IRON [Concomitant]

REACTIONS (2)
  - CARDIAC FAILURE CONGESTIVE [None]
  - CEREBROVASCULAR ACCIDENT [None]
